FAERS Safety Report 5769125-2 (Version None)
Quarter: 2008Q2

REPORT INFORMATION
  Report Type: 
  Country: None (occurrence: None)
  Receive Date: 20080612
  Receipt Date: 20080320
  Transmission Date: 20081010
  Serious: No
  Sender: FDA-Public Use
  Company Number: US-ABBOTT-08P-163-0443764-00

PATIENT
  Sex: Male
  Weight: 95.34 kg

DRUGS (8)
  1. HUMIRA [Suspect]
     Indication: PSORIASIS
     Route: 058
     Dates: start: 20070601
  2. HUMIRA [Suspect]
     Indication: PSORIATIC ARTHROPATHY
  3. METOPROLOL SUCCINATE [Concomitant]
     Indication: CARDIAC DISORDER
     Route: 048
  4. LOSARTAN POTASSIUM [Concomitant]
     Indication: CARDIAC DISORDER
     Route: 048
  5. FUROSEMIDE [Concomitant]
     Indication: CARDIAC DISORDER
     Route: 048
  6. FOLIC ACID [Concomitant]
     Indication: VITAMIN SUPPLEMENTATION
     Route: 048
  7. METHOTREXATE [Concomitant]
     Indication: PSORIASIS
     Route: 048
  8. METHOTREXATE [Concomitant]
     Indication: PSORIATIC ARTHROPATHY

REACTIONS (2)
  - ACCIDENTAL EXPOSURE [None]
  - INJECTION SITE PAIN [None]
